FAERS Safety Report 12158590 (Version 1)
Quarter: 2016Q1

REPORT INFORMATION
  Report Type: Spontaneous
  Country: US (occurrence: US)
  Receive Date: 20160308
  Receipt Date: 20160308
  Transmission Date: 20160526
  Serious: No
  Sender: FDA-Public Use
  Company Number: US-JNJFOC-20160108202

PATIENT
  Age: 73 Year
  Sex: Female

DRUGS (3)
  1. TYLENOL 8 HR ARTHRITIS PAIN [Suspect]
     Active Substance: ACETAMINOPHEN
     Route: 048
  2. TYLENOL 8 HR ARTHRITIS PAIN [Suspect]
     Active Substance: ACETAMINOPHEN
     Indication: SCIATICA
     Route: 048
     Dates: start: 20160111
  3. ADVIL [Concomitant]
     Active Substance: IBUPROFEN
     Indication: SCIATICA
     Route: 065

REACTIONS (4)
  - Underdose [Unknown]
  - Product use issue [Unknown]
  - Expired product administered [Unknown]
  - Off label use [Unknown]
